FAERS Safety Report 15750920 (Version 1)
Quarter: 2018Q4

REPORT INFORMATION
  Report Type: Spontaneous
  Country: US (occurrence: US)
  Receive Date: 20181221
  Receipt Date: 20181221
  Transmission Date: 20190205
  Serious: No
  Sender: FDA-Public Use
  Company Number: US-BAYER-2018-241779

PATIENT
  Sex: Male

DRUGS (2)
  1. CLARITIN [Suspect]
     Active Substance: LORATADINE
     Dosage: UNK
  2. LEMTRADA [Concomitant]
     Active Substance: ALEMTUZUMAB

REACTIONS (9)
  - Condition aggravated [Unknown]
  - Epistaxis [Unknown]
  - Skin atrophy [Unknown]
  - Vision blurred [Unknown]
  - Erythema [Unknown]
  - Nausea [Unknown]
  - Rash [Unknown]
  - Fatigue [Unknown]
  - Pain of skin [Unknown]
